FAERS Safety Report 26024800 (Version 2)
Quarter: 2025Q4

REPORT INFORMATION
  Report Type: Spontaneous
  Country: US (occurrence: US)
  Receive Date: 20251111
  Receipt Date: 20251216
  Transmission Date: 20260119
  Serious: Yes (Death)
  Sender: ALVOGEN
  Company Number: US-BMS-IMIDS-REMS_SI-1761932997690

PATIENT
  Age: 74 Year
  Sex: Male

DRUGS (1)
  1. LENALIDOMIDE [Suspect]
     Active Substance: LENALIDOMIDE
     Indication: Product used for unknown indication
     Dosage: 10 MG
     Dates: start: 20250905

REACTIONS (2)
  - Acute respiratory failure [Fatal]
  - Off label use [Unknown]

NARRATIVE: CASE EVENT DATE: 20250101
